FAERS Safety Report 5410864-0 (Version None)
Quarter: 2007Q3

REPORT INFORMATION
  Report Type: 
  Country: None (occurrence: None)
  Receive Date: 20070810
  Receipt Date: 20070801
  Transmission Date: 20080115
  Serious: Yes (Hospitalization)
  Sender: FDA-Public Use
  Company Number: FR-JNJFOC-20070800247

PATIENT
  Age: 95 Year
  Sex: Female

DRUGS (10)
  1. OFLOCET [Suspect]
     Indication: INFECTION
     Route: 048
  2. ECONAZOLE NITRATE [Suspect]
     Indication: DRUG USE FOR UNKNOWN INDICATION
     Route: 061
  3. AUGMENTIN '125' [Suspect]
     Indication: INFECTION
     Route: 048
  4. TRIFLUCAN [Suspect]
     Indication: INFECTION
     Route: 048
  5. PARACETAMOL [Suspect]
     Indication: DRUG USE FOR UNKNOWN INDICATION
     Route: 065
  6. LASIX [Suspect]
     Indication: DRUG USE FOR UNKNOWN INDICATION
     Route: 048
  7. FERROUS SULFATE [Suspect]
     Indication: DRUG USE FOR UNKNOWN INDICATION
     Route: 048
  8. DACRYOSERUM [Concomitant]
     Route: 065
  9. LORAZEPAM [Concomitant]
     Route: 065
  10. PYOSTACINE [Concomitant]
     Route: 048

REACTIONS (1)
  - HEPATITIS CHOLESTATIC [None]
